FAERS Safety Report 7272460-2 (Version None)
Quarter: 2011Q1

REPORT INFORMATION
  Report Type: 
  Country: None (occurrence: None)
  Receive Date: 20110203
  Receipt Date: 20110128
  Transmission Date: 20110831
  Serious: Yes (Hospitalization, Other)
  Sender: FDA-Public Use
  Company Number: US-ABBOTT-11P-163-0701924-00

PATIENT
  Sex: Male
  Weight: 81.72 kg

DRUGS (4)
  1. METFORMIN HCL [Concomitant]
     Indication: GLUCOSE TOLERANCE IMPAIRED
  2. ATENOLOL [Concomitant]
     Indication: HYPERTENSION
  3. HUMIRA [Suspect]
     Dates: start: 20100801
  4. HUMIRA [Suspect]
     Indication: CROHN'S DISEASE
     Dates: start: 20091005, end: 20100501

REACTIONS (11)
  - INTESTINAL FISTULA INFECTION [None]
  - SEPSIS [None]
  - MENTAL IMPAIRMENT [None]
  - WEIGHT DECREASED [None]
  - PAIN [None]
  - AMNESIA [None]
  - ABDOMINAL PAIN [None]
  - DIARRHOEA [None]
  - ABSCESS [None]
  - DYSGEUSIA [None]
  - DELIRIUM [None]
